FAERS Safety Report 10283922 (Version 3)
Quarter: 2014Q3

REPORT INFORMATION
  Report Type: Spontaneous
  Country: US (occurrence: US)
  Receive Date: 20140708
  Receipt Date: 20140929
  Transmission Date: 20150326
  Serious: Yes (Hospitalization, Other)
  Sender: FDA-Public Use
  Company Number: US-BAYER-2014-101056

PATIENT
  Age: 42 Year
  Sex: Female
  Weight: 79.37 kg

DRUGS (9)
  1. ZOVIRAX [Concomitant]
     Active Substance: ACYCLOVIR
  2. MONISTAT [Concomitant]
     Active Substance: MICONAZOLE NITRATE
  3. MIRENA [Suspect]
     Active Substance: LEVONORGESTREL
     Indication: CONTRACEPTION
     Dosage: 20 MCG/24HR, CONT
     Route: 015
     Dates: start: 20030325, end: 20030819
  4. DIFLUCAN [Concomitant]
     Active Substance: FLUCONAZOLE
     Dosage: 150 MG, UNK
  5. LOTRIMIN [Concomitant]
     Active Substance: CLOTRIMAZOLE
  6. LOTRISONE [Concomitant]
     Active Substance: BETAMETHASONE DIPROPIONATE\CLOTRIMAZOLE
  7. KEFLEX [Concomitant]
     Active Substance: CEPHALEXIN
     Dosage: 500 MG, QID, 10 DAYS
     Route: 048
  8. HIDROCORTISON [Concomitant]
  9. MOTRIN [Concomitant]
     Active Substance: IBUPROFEN
     Dosage: 600 MG, TID
     Route: 048

REACTIONS (8)
  - Genital haemorrhage [None]
  - Uterine perforation [None]
  - Device dislocation [None]
  - Emotional distress [None]
  - Procedural pain [None]
  - Device issue [None]
  - Pain [None]
  - Injury [None]

NARRATIVE: CASE EVENT DATE: 200307
